FAERS Safety Report 8431932-5 (Version None)
Quarter: 2012Q2

REPORT INFORMATION
  Report Type: 
  Country: None (occurrence: None)
  Receive Date: 20120613
  Receipt Date: 20111025
  Transmission Date: 20120825
  Serious: No
  Sender: FDA-Public Use
  Company Number: US-ASTRAZENECA-2011SE59933

PATIENT
  Age: 77 Year
  Sex: Female
  Weight: 77.6 kg

DRUGS (2)
  1. RHINOCORT [Suspect]
     Indication: NASAL CONGESTION
     Dosage: ONCE DAILY
     Route: 045
  2. RHINOCORT [Suspect]
     Dosage: TWICE
     Route: 045

REACTIONS (7)
  - ANGER [None]
  - IRRITABILITY [None]
  - NERVOUSNESS [None]
  - FEELING ABNORMAL [None]
  - HYPERHIDROSIS [None]
  - THERAPEUTIC RESPONSE DELAYED [None]
  - AGITATION [None]
